FAERS Safety Report 9258167 (Version 2)
Quarter: 2014Q1

REPORT INFORMATION
  Report Type: Spontaneous
  Country: US (occurrence: None)
  Receive Date: 20121212
  Receipt Date: 20130314
  Transmission Date: 20141002
  Serious: No
  Sender: FDA-Public Use
  Company Number: 1209USA003848

PATIENT
  Age: 68 Year
  Sex: Male

DRUGS (12)
  1. VICTRELIS (BOCEPREVIR) CAPSULE, 200MG [Suspect]
     Indication: HEPATITIS C
     Dosage: 4 DF, Q8H
     Route: 048
     Dates: start: 20120816
  2. PEGASYS (PEGINTERFERON ALFA-2A) 180MCG/0.5ML [Suspect]
     Indication: HEPATITIS C
     Dosage: 180 UG/0.5 ML
  3. RIBASPHERE (RIBAVIRIN) TABLET, 200MG [Suspect]
  4. COREG (CARVEDILOL) [Concomitant]
  5. ACCUPRIL (QUINAPRIL HYDROCHLORIDE) [Concomitant]
  6. TAMSULOSIN HYDROCHLORIDE [Concomitant]
  7. HYDROCHLOROTHIAXID (HYDROCHLOROTHIAZIDE) [Concomitant]
  8. VITAMIN B COMPLEX [Concomitant]
  9. OXYCONTIN (OXYCODONE HYDROCHLORIDE) [Concomitant]
  10. PRILOSEC OTC (OMEPRAZOLE MAGNESIUM) [Concomitant]
  11. VITAMIN D [Concomitant]
  12. PROCRIT (EPOETIN ALFA) [Concomitant]

REACTIONS (4)
  - Injection site rash [None]
  - Fatigue [None]
  - Haemoglobin decreased [None]
  - Nausea [None]
